FAERS Safety Report 4267178-4 (Version None)
Quarter: 2004Q1

REPORT INFORMATION
  Report Type: 
  Country: None (occurrence: None)
  Receive Date: 20040107
  Receipt Date: 20031229
  Transmission Date: 20041129
  Serious: Yes (Hospitalization)
  Sender: FDA-Public Use
  Company Number: 2003SE05873

PATIENT
  Age: 92 Year
  Sex: Female
  Weight: 28 kg

DRUGS (5)
  1. BLOPRESS [Suspect]
     Indication: HYPERTENSION
     Dosage: 4 MG QD PO
     Route: 048
     Dates: start: 20020528, end: 20031208
  2. BENIDIPINE HYDROCHLORIDE [Concomitant]
  3. UBIDECARENONE [Concomitant]
  4. ACETYLSALICYLIC ACID SRT [Concomitant]
  5. TRAPIDIL [Concomitant]

REACTIONS (4)
  - DECREASED APPETITE [None]
  - DEHYDRATION [None]
  - INTERSTITIAL LUNG DISEASE [None]
  - RESPIRATORY FAILURE [None]
